FAERS Safety Report 24350848 (Version 1)
Quarter: 2024Q3

REPORT INFORMATION
  Report Type: Other
  Country: US (occurrence: US)
  Receive Date: 20240923
  Receipt Date: 20240923
  Transmission Date: 20241016
  Serious: Yes (Death, Other)
  Sender: NOVA LABORATORIES
  Company Number: US-Nova Laboratories Limited-2161920

PATIENT
  Age: 3 Year
  Sex: Male

DRUGS (3)
  1. PURIXAN [Suspect]
     Active Substance: MERCAPTOPURINE
  2. FLUDARABINE [Suspect]
     Active Substance: FLUDARABINE PHOSPHATE
  3. CYTARABINE [Suspect]
     Active Substance: CYTARABINE

REACTIONS (2)
  - Transformation to acute myeloid leukaemia [Fatal]
  - Juvenile chronic myelomonocytic leukaemia [Unknown]
